FAERS Safety Report 9207625 (Version 1)
Quarter: 2013Q2

REPORT INFORMATION
  Report Type: Spontaneous
  Country: GB (occurrence: GB)
  Receive Date: 20130403
  Receipt Date: 20130403
  Transmission Date: 20140414
  Serious: Yes (Other)
  Sender: FDA-Public Use
  Company Number: GB-ROCHE-1209483

PATIENT
  Age: 66 Year
  Sex: Female
  Weight: 62.2 kg

DRUGS (1)
  1. TRASTUZUMAB [Suspect]
     Indication: PRODUCT USED FOR UNKNOWN INDICATION
     Route: 042
     Dates: start: 20120418, end: 20130304

REACTIONS (4)
  - Eye haemorrhage [Recovered/Resolved with Sequelae]
  - Blindness [Unknown]
  - Retinal haemorrhage [Recovered/Resolved with Sequelae]
  - Vitreous haemorrhage [Recovered/Resolved with Sequelae]
